FAERS Safety Report 25265399 (Version 1)
Quarter: 2025Q2

REPORT INFORMATION
  Report Type: Spontaneous
  Country: GB (occurrence: GB)
  Receive Date: 20250502
  Receipt Date: 20250502
  Transmission Date: 20250717
  Serious: Yes (Disabling, Other)
  Sender: MYLAN
  Company Number: None

PATIENT
  Age: 80 Year
  Sex: Male
  Weight: 79 kg

DRUGS (4)
  1. FINASTERIDE [Suspect]
     Active Substance: FINASTERIDE
     Indication: Prostate cancer
  2. FINASTERIDE [Suspect]
     Active Substance: FINASTERIDE
     Route: 065
  3. FINASTERIDE [Suspect]
     Active Substance: FINASTERIDE
     Route: 065
  4. FINASTERIDE [Suspect]
     Active Substance: FINASTERIDE

REACTIONS (2)
  - Erectile dysfunction [Unknown]
  - Off label use [Unknown]
